FAERS Safety Report 23885739 (Version 1)
Quarter: 2024Q2

REPORT INFORMATION
  Report Type: Spontaneous
  Country: US (occurrence: US)
  Receive Date: 20240522
  Receipt Date: 20240522
  Transmission Date: 20240716
  Serious: Yes (Hospitalization)
  Sender: FDA-Public Use
  Company Number: US-ABBVIE-5767895

PATIENT
  Sex: Female

DRUGS (1)
  1. REFRESH OPTIVE GEL DROPS [Suspect]
     Active Substance: CARBOXYMETHYLCELLULOSE SODIUM\GLYCERIN
     Indication: Product used for unknown indication
     Dosage: FORM STRENGTH WAS CMC 10MG/ML; GLYCERIN 9MG/ML
     Route: 047

REACTIONS (2)
  - Lower limb fracture [Unknown]
  - Unevaluable event [Unknown]
